FAERS Safety Report 12379748 (Version 1)
Quarter: 2016Q2

REPORT INFORMATION
  Report Type: Spontaneous
  Country: US (occurrence: None)
  Receive Date: 20160516
  Receipt Date: 20160516
  Transmission Date: 20160815
  Serious: Yes (Hospitalization)
  Sender: FDA-Public Use
  Company Number: None

PATIENT
  Age: 62 Year
  Sex: Male
  Weight: 113.6 kg

DRUGS (2)
  1. DEXTROMETHORPHAN/GLYCEROL,IODINATED [Suspect]
     Active Substance: DEXTROMETHORPHAN HYDROBROMIDE\GLYCEROL, IODINATED
     Indication: UPPER RESPIRATORY TRACT INFECTION
     Dates: start: 20151217
  2. DULOXETINE. [Suspect]
     Active Substance: DULOXETINE
     Indication: DEPRESSION
     Route: 048
     Dates: start: 20151217

REACTIONS (4)
  - Confusional state [None]
  - Agitation [None]
  - Tardive dyskinesia [None]
  - Parkinsonism [None]

NARRATIVE: CASE EVENT DATE: 20151217
